FAERS Safety Report 5470967-1 (Version None)
Quarter: 2007Q3

REPORT INFORMATION
  Report Type: 
  Country: None (occurrence: None)
  Receive Date: 20070928
  Receipt Date: 20070919
  Transmission Date: 20080115
  Serious: Yes (Death, Hospitalization)
  Sender: FDA-Public Use
  Company Number: US-ROCHE-495795

PATIENT
  Age: 19 Year
  Sex: Female
  Weight: 74.5 kg

DRUGS (8)
  1. VESANOID [Suspect]
     Dosage: ROUTE WAS REPORTED AS BOTH NASOGASTRIC AND ORAL LOT # WAS REPORTED AS U0020
     Route: 065
     Dates: start: 20070423, end: 20070425
  2. VESANOID [Suspect]
     Dosage: ROUTE WAS REPORTED AS BOTH NASOGASTRIC AND ORAL LOT # WAS REPORTED AS U0016
     Route: 065
     Dates: start: 20070412, end: 20070413
  3. IDARUBICIN HCL [Concomitant]
     Dosage: DOSAGE WAS 20MG, FREQUENCY UNKNOWN
     Route: 065
     Dates: start: 20070413
  4. ACYCLOVIR [Concomitant]
     Indication: PROPHYLAXIS
     Dosage: THE DOSE WAS CHANGED TO 200MG PO EVERY 24 HOURS FOR 2 DAYS (NOS)AND THEN EVERY 12 HOURS (26 APRIL 2+
     Route: 048
     Dates: start: 20070413, end: 20070421
  5. UNASYN [Concomitant]
     Route: 042
     Dates: start: 20070411, end: 20070413
  6. DECADRON [Concomitant]
     Dosage: ROUTE REPORTED AS BOTH ORAL AND INTRAVENOUS, 10MG EVERY 12 HOURS
     Dates: start: 20070412, end: 20070420
  7. LORAZEPAM [Concomitant]
     Dosage: ONE TIME DOSE
     Dates: start: 20070412, end: 20070412
  8. PERCOCET [Concomitant]
     Dosage: REPORTED AS 5/325MG, ONE TABLET EVERY 6 HOURS AS NEEDED
     Route: 048

REACTIONS (4)
  - DISSEMINATED INTRAVASCULAR COAGULATION [None]
  - HYPOXIA [None]
  - RESPIRATORY FAILURE [None]
  - RETINOIC ACID SYNDROME [None]
